FAERS Safety Report 13354287 (Version 1)
Quarter: 2017Q1

REPORT INFORMATION
  Report Type: Spontaneous
  Country: FR (occurrence: FR)
  Receive Date: 20170321
  Receipt Date: 20170321
  Transmission Date: 20170429
  Serious: Yes (Hospitalization)
  Sender: FDA-Public Use
  Company Number: FR-TEVA-748531ROM

PATIENT
  Age: 19 Year
  Sex: Female

DRUGS (5)
  1. LEVOFLOXACINE MYLAN 500 MG [Suspect]
     Active Substance: LEVOFLOXACIN
     Indication: PSEUDARTHROSIS
     Dosage: 1.5 DOSAGE FORMS DAILY;
     Route: 048
     Dates: start: 20170121, end: 20170130
  2. COTRIMOXAZOLE [Suspect]
     Active Substance: SULFAMETHOXAZOLE\TRIMETHOPRIM
     Indication: PSEUDARTHROSIS
     Dosage: 2 DOSAGE FORMS DAILY;
     Route: 048
     Dates: start: 20170118, end: 20170130
  3. AMOXICILLINE MYLAN 500 MG [Suspect]
     Active Substance: AMOXICILLIN
     Indication: PSEUDARTHROSIS
     Dosage: 4.5 GRAM DAILY;
     Route: 048
     Dates: start: 20170118, end: 20170121
  4. BACTRIM [Suspect]
     Active Substance: SULFAMETHOXAZOLE\TRIMETHOPRIM
     Indication: PSEUDARTHROSIS
     Dosage: 1600 MILLIGRAM DAILY;
     Route: 048
     Dates: start: 20170109, end: 20170117
  5. AMOXICILLINE MYLAN 1 G [Suspect]
     Active Substance: AMOXICILLIN
     Indication: PSEUDARTHROSIS
     Dosage: 4.5 GRAM DAILY;
     Route: 048
     Dates: start: 20170109, end: 20170117

REACTIONS (5)
  - Rash maculo-papular [Recovered/Resolved]
  - Rash pruritic [Recovered/Resolved]
  - Purpura [Recovered/Resolved]
  - Face oedema [Recovered/Resolved]
  - Oedema peripheral [Recovered/Resolved]

NARRATIVE: CASE EVENT DATE: 20170130
